FAERS Safety Report 7334687-0 (Version None)
Quarter: 2011Q1

REPORT INFORMATION
  Report Type: 
  Country: None (occurrence: None)
  Receive Date: 20110307
  Receipt Date: 20110224
  Transmission Date: 20110831
  Serious: Yes (Hospitalization)
  Sender: FDA-Public Use
  Company Number: AU-US-EMD SERONO, INC.-7043568

PATIENT
  Sex: Female
  Weight: 55 kg

DRUGS (7)
  1. ASPIRIN [Concomitant]
     Indication: ROUTINE HEALTH MAINTENANCE
     Route: 048
  2. FISH OIL [Concomitant]
     Indication: ROUTINE HEALTH MAINTENANCE
     Route: 048
  3. VITAMIN D [Concomitant]
     Indication: ROUTINE HEALTH MAINTENANCE
     Route: 048
  4. VITAMIN B-12 [Concomitant]
     Indication: ROUTINE HEALTH MAINTENANCE
     Route: 048
  5. GLUCOSAMINE [Concomitant]
     Indication: ROUTINE HEALTH MAINTENANCE
     Route: 048
  6. REBIF [Suspect]
     Indication: MULTIPLE SCLEROSIS
     Route: 058
     Dates: start: 20100616
  7. VITAMINE E [Concomitant]
     Indication: ROUTINE HEALTH MAINTENANCE
     Route: 048

REACTIONS (2)
  - NEUTROPENIA [None]
  - ANAEMIA [None]
